FAERS Safety Report 5165537-9 (Version None)
Quarter: 2006Q4

REPORT INFORMATION
  Report Type: 
  Country: None (occurrence: None)
  Receive Date: 20061206
  Receipt Date: 20061030
  Transmission Date: 20070319
  Serious: Yes (Hospitalization)
  Sender: FDA-Public Use
  Company Number: JP-NOVOPROD-258211

PATIENT
  Age: 54 Year
  Sex: Male
  Weight: 63 kg

DRUGS (7)
  1. NOVOLIN R [Suspect]
     Indication: DIABETES MELLITUS INSULIN-DEPENDENT
     Dosage: 54 IU, QD
     Route: 058
     Dates: start: 20040531, end: 20040813
  2. NOVOLIN N [Suspect]
     Indication: DIABETES MELLITUS INSULIN-DEPENDENT
     Dosage: 14 IU, QD
     Route: 058
     Dates: start: 20040531, end: 20040813
  3. NOVOLIN N [Suspect]
     Dosage: 26 IE QD
     Route: 058
     Dates: start: 20060814, end: 20060820
  4. NOVORAPID CHU FLEXPEN [Suspect]
     Indication: DIABETES MELLITUS INSULIN-DEPENDENT
     Dosage: 60 IE, UNK
     Route: 058
     Dates: start: 20040814, end: 20040820
  5. NOVORAPID CHU FLEXPEN [Suspect]
     Dosage: 30 IU (10+10+10)
     Dates: start: 20041120, end: 20050220
  6. HUMALOG MIX 25 [Suspect]
     Indication: DIABETES MELLITUS INSULIN-DEPENDENT
     Dosage: 40 IU, UNK
     Route: 058
     Dates: start: 20050301
  7. LANTUS [Suspect]
     Indication: DIABETES MELLITUS INSULIN-DEPENDENT
     Route: 058
     Dates: start: 20040821, end: 20050228

REACTIONS (3)
  - ANTI-INSULIN ANTIBODY POSITIVE [None]
  - DIABETES MELLITUS INADEQUATE CONTROL [None]
  - DRUG HYPERSENSITIVITY [None]
